FAERS Safety Report 13995351 (Version 1)
Quarter: 2017Q3

REPORT INFORMATION
  Report Type: Report from Study
  Country: US (occurrence: US)
  Receive Date: 20170921
  Receipt Date: 20170921
  Transmission Date: 20171128
  Serious: Yes (Hospitalization, Other)
  Sender: FDA-Public Use
  Company Number: US-GILEAD-2017-0294313

PATIENT
  Age: 71 Year
  Sex: Male

DRUGS (5)
  1. ADCIRCA [Suspect]
     Active Substance: TADALAFIL
     Indication: PRODUCT USED FOR UNKNOWN INDICATION
     Route: 065
  2. SUCRALFATE. [Concomitant]
     Active Substance: SUCRALFATE
  3. PLAVIX [Concomitant]
     Active Substance: CLOPIDOGREL BISULFATE
  4. ALLOPURINOL. [Concomitant]
     Active Substance: ALLOPURINOL
  5. AMBRISENTAN [Suspect]
     Active Substance: AMBRISENTAN
     Indication: PULMONARY HYPERTENSION
     Dosage: 10 MG, QD
     Route: 065
     Dates: start: 20170420

REACTIONS (4)
  - Urinary tract infection [Unknown]
  - Infectious colitis [Unknown]
  - Pneumonia [Unknown]
  - Diarrhoea [Unknown]

NARRATIVE: CASE EVENT DATE: 20170907
